FAERS Safety Report 9732864 (Version 2)
Quarter: 2013Q4

REPORT INFORMATION
  Report Type: Report from Study
  Country: FR (occurrence: FR)
  Receive Date: 20131205
  Receipt Date: 20131205
  Transmission Date: 20140711
  Serious: Yes (Hospitalization)
  Sender: FDA-Public Use
  Company Number: FR-BRISTOL-MYERS SQUIBB COMPANY-19722933

PATIENT
  Age: 63 Year
  Sex: Male

DRUGS (8)
  1. PACLITAXEL [Suspect]
     Indication: NON-SMALL CELL LUNG CANCER
     Dosage: LAST DOSE 330 MNG
     Route: 042
     Dates: start: 20130917
  2. CARBOPLATIN [Suspect]
     Indication: NON-SMALL CELL LUNG CANCER
     Dosage: LAST DOSE 550 MG (L IN 21 D)
     Route: 042
     Dates: start: 20130917
  3. AMAREL [Concomitant]
     Indication: DIABETES MELLITUS
     Route: 048
     Dates: start: 20130823
  4. MEDROL [Concomitant]
     Indication: ASTHENIA
     Route: 048
     Dates: start: 20130924
  5. KYTRIL [Concomitant]
     Indication: PREMEDICATION
     Route: 048
     Dates: start: 20130917
  6. EMEND [Concomitant]
     Indication: VOMITING
     Dosage: 125MG 17SP13-UNK?80MG 18SP13-ONG
     Route: 048
     Dates: start: 20130917
  7. EFFERALGAN TABS [Concomitant]
     Indication: HEADACHE
     Dosage: EFFERALGAN CODEINE TABS
     Route: 048
     Dates: start: 20130924
  8. OXYCONTIN [Concomitant]
     Indication: COUGH
     Route: 048
     Dates: start: 20131001

REACTIONS (1)
  - Asthenia [Recovered/Resolved]
